FAERS Safety Report 24145828 (Version 1)
Quarter: 2024Q3

REPORT INFORMATION
  Report Type: Spontaneous
  Country: FR (occurrence: FR)
  Receive Date: 20240729
  Receipt Date: 20240729
  Transmission Date: 20241016
  Serious: Yes (Hospitalization, Other)
  Sender: AUROBINDO
  Company Number: FR-AFSSAPS-PV2024000668

PATIENT
  Age: 89 Year
  Sex: Male
  Weight: 70 kg

DRUGS (1)
  1. RIVASTIGMINE [Suspect]
     Active Substance: RIVASTIGMINE
     Indication: Product used for unknown indication
     Dosage: 4.6 MILLIGRAM, ONCE A DAY
     Route: 062
     Dates: start: 20240704, end: 20240705

REACTIONS (4)
  - Hypoxia [Recovering/Resolving]
  - Disturbance in attention [Recovering/Resolving]
  - Diarrhoea [Recovering/Resolving]
  - Miosis [Recovering/Resolving]

NARRATIVE: CASE EVENT DATE: 20240705
